FAERS Safety Report 15740335 (Version 6)
Quarter: 2019Q3

REPORT INFORMATION
  Report Type: Spontaneous
  Country: BR (occurrence: BR)
  Receive Date: 20181219
  Receipt Date: 20190819
  Transmission Date: 20191004
  Serious: Yes (Hospitalization, Other)
  Sender: FDA-Public Use
  Company Number: BR-GLAXOSMITHKLINE-BR2018GSK225813

PATIENT
  Sex: Female
  Weight: 94 kg

DRUGS (1)
  1. BENLYSTA [Suspect]
     Active Substance: BELIMUMAB
     Indication: SYSTEMIC LUPUS ERYTHEMATOSUS
     Dosage: 800 MG, UNK
     Dates: start: 20170801

REACTIONS (7)
  - Underdose [Not Recovered/Not Resolved]
  - Inappropriate schedule of product administration [Unknown]
  - Circumstance or information capable of leading to medication error [Not Recovered/Not Resolved]
  - Urinary tract infection [Recovered/Resolved]
  - Product dose omission [Recovered/Resolved]
  - Tuberculosis [Recovered/Resolved]
  - Weight increased [Unknown]
